FAERS Safety Report 7915684-0 (Version None)
Quarter: 2011Q4

REPORT INFORMATION
  Report Type: 
  Country: None (occurrence: None)
  Receive Date: 20111115
  Receipt Date: 20111104
  Transmission Date: 20120403
  Serious: Yes (Other)
  Sender: FDA-Public Use
  Company Number: US-GLAXOSMITHKLINE-A0952190A

PATIENT
  Age: 37 Year
  Sex: Female

DRUGS (2)
  1. KEPPRA [Concomitant]
  2. LAMOTRIGINE [Suspect]
     Indication: EPILEPSY
     Route: 048

REACTIONS (4)
  - SINUSITIS [None]
  - CEREBELLAR ATROPHY [None]
  - DRY SKIN [None]
  - RASH [None]
